FAERS Safety Report 4520125-X (Version None)
Quarter: 2004Q4

REPORT INFORMATION
  Report Type: 
  Country: None (occurrence: None)
  Receive Date: 20041202
  Receipt Date: 20041202
  Transmission Date: 20050328
  Serious: Yes (Life-Threatening, Hospitalization)
  Sender: FDA-Public Use
  Company Number: None

PATIENT
  Age: 52 Year
  Sex: Male
  Weight: 80.2867 kg

DRUGS (20)
  1. DAUNORUBICIN [Suspect]
     Indication: ACUTE MYELOID LEUKAEMIA
     Dosage: 90 MG/M2/DAY DAY 1,2,3
  2. CYTARABINE [Suspect]
     Dosage: 100 MG/M2/DAY DAYS 1-7
  3. ACYCLOVIR [Concomitant]
  4. ALLOPURINOL [Concomitant]
  5. ANAKACIN [Concomitant]
  6. ATIVAN [Concomitant]
  7. AZITHROMYCIN [Concomitant]
  8. COMPAZINE [Concomitant]
  9. GRADE III MOUTHWASH [Concomitant]
  10. HABITROL 21 [Concomitant]
  11. MAGNESIUM SULFATE [Concomitant]
  12. OXYCODONE HCL [Concomitant]
  13. PERIDEX [Concomitant]
  14. POTASSIUM CHLORIDE [Concomitant]
  15. TYLENOL (CAPLET) [Concomitant]
  16. ZOFRAN [Concomitant]
  17. BENADRYL [Concomitant]
  18. PRIMAXIN [Concomitant]
  19. TULISATE [Concomitant]
  20. LIDOCAINE SODIUM [Concomitant]

REACTIONS (1)
  - NO ADVERSE EFFECT [None]
